FAERS Safety Report 6925236-7 (Version None)
Quarter: 2010Q3

REPORT INFORMATION
  Report Type: 
  Country: None (occurrence: None)
  Receive Date: 20100816
  Receipt Date: 20100810
  Transmission Date: 20110219
  Serious: Yes (Other)
  Sender: FDA-Public Use
  Company Number: CN-BAYER-201033837GPV

PATIENT
  Age: 74 Year
  Sex: Male

DRUGS (5)
  1. AVELOX [Suspect]
     Indication: LUNG INFECTION
     Route: 042
     Dates: start: 20090923, end: 20090925
  2. XINGNAOJING [Concomitant]
     Route: 042
     Dates: start: 20090923
  3. HERBA ERIGERONTIS [Concomitant]
     Route: 042
     Dates: start: 20090923
  4. XUESHUANTONG [Concomitant]
     Route: 042
     Dates: start: 20090923
  5. TANREQING [Concomitant]
     Indication: INCREASED UPPER AIRWAY SECRETION

REACTIONS (1)
  - RHABDOMYOLYSIS [None]
